FAERS Safety Report 4361489-X (Version None)
Quarter: 2004Q2

REPORT INFORMATION
  Report Type: 
  Country: None (occurrence: None)
  Receive Date: 20040521
  Receipt Date: 20030910
  Transmission Date: 20050107
  Serious: No
  Sender: FDA-Public Use
  Company Number: US-GLAXOSMITHKLINE-A0425340A

PATIENT
  Age: 67 Year
  Sex: Female

DRUGS (9)
  1. ZYBAN [Suspect]
     Dosage: 150MG TWICE PER DAY
     Route: 048
     Dates: start: 20030801
  2. SYNTHROID [Concomitant]
  3. AMITRIPTYLINE HCL [Concomitant]
  4. IBUPROFEN [Concomitant]
  5. EVISTA [Concomitant]
  6. PROZAC [Concomitant]
  7. INDAPAMIDE [Concomitant]
  8. MUSCLE RELAXER [Concomitant]
  9. CATAPRES-TTS-1 [Concomitant]

REACTIONS (3)
  - ACTIVITIES OF DAILY LIVING IMPAIRED [None]
  - ARTHRALGIA [None]
  - DEPRESSION [None]
